FAERS Safety Report 7056384-1 (Version None)
Quarter: 2010Q4

REPORT INFORMATION
  Report Type: 
  Country: None (occurrence: None)
  Receive Date: 20101021
  Receipt Date: 20101015
  Transmission Date: 20110411
  Serious: Yes (Death, Other)
  Sender: FDA-Public Use
  Company Number: PHHY2010JP08416

PATIENT
  Sex: Female

DRUGS (14)
  1. ZOLEDRONATE T29581+ [Suspect]
     Indication: METASTASES TO BONE
     Dosage: 4 MG (EVERY 2 WEEKS)
     Route: 042
     Dates: start: 20070619, end: 20080110
  2. ZOLEDRONATE T29581+ [Suspect]
     Dosage: 4 MG (EVERY 4 WEEKS)
     Route: 042
     Dates: start: 20080207, end: 20081110
  3. ZOLEDRONATE T29581+ [Suspect]
     Dosage: 4 MG (EVERY 3 WEEKS)
     Route: 042
     Dates: start: 20081203, end: 20090514
  4. ZOLEDRONATE T29581+ [Suspect]
     Dosage: 4 MG (EVERY 4 WEEKS)
     Route: 042
     Dates: start: 20090611, end: 20100413
  5. FARESTON [Concomitant]
     Indication: BREAST CANCER FEMALE
     Dosage: 120 MG, UNK
     Route: 048
     Dates: start: 20070517, end: 20080213
  6. FEMARA [Concomitant]
     Indication: BREAST CANCER FEMALE
     Dosage: 2.5 MG, UNK
     Route: 048
     Dates: start: 20080214, end: 20080804
  7. TAXOL [Concomitant]
     Indication: BREAST CANCER FEMALE
     Dosage: 130 MG, UNK
     Route: 042
     Dates: start: 20080807, end: 20080904
  8. EPIRUBICIN HYDROCHLORIDE [Concomitant]
     Indication: BREAST CANCER FEMALE
     Dosage: 80 MG, UNK
     Route: 042
     Dates: start: 20081022, end: 20090514
  9. FLUOROURACIL [Concomitant]
     Indication: BREAST CANCER FEMALE
     Dosage: 700 MG, UNK
     Route: 042
     Dates: start: 20081022, end: 20090514
  10. ENDOXAN [Concomitant]
     Indication: BREAST CANCER FEMALE
     Dosage: 700 MG, UNK
     Route: 042
     Dates: start: 20081022
  11. ENDOXAN [Concomitant]
     Dosage: 100 MG, UNK
     Route: 042
     Dates: end: 20100316
  12. XELODA [Concomitant]
     Indication: BREAST CANCER FEMALE
     Dosage: 2400 MG, UNK
     Route: 048
     Dates: start: 20090611, end: 20100104
  13. OXYCONTIN [Concomitant]
     Indication: CANCER PAIN
     Dosage: 15 MG, UNK
     Route: 048
     Dates: start: 20070618, end: 20071031
  14. RADIATION [Concomitant]

REACTIONS (5)
  - HYPOCALCAEMIA [None]
  - MALIGNANT NEOPLASM PROGRESSION [None]
  - NAUSEA [None]
  - PAIN [None]
  - WHITE BLOOD CELL COUNT DECREASED [None]
